FAERS Safety Report 14340520 (Version 1)
Quarter: 2018Q1

REPORT INFORMATION
  Report Type: Spontaneous
  Country: US (occurrence: US)
  Receive Date: 20180101
  Receipt Date: 20180101
  Transmission Date: 20180509
  Serious: Yes (Other)
  Sender: FDA-Public Use
  Company Number: US-AUROBINDO-AUR-APL-2017-46768

PATIENT
  Age: 50 Year
  Sex: Female

DRUGS (1)
  1. PHENTERMINE. [Suspect]
     Active Substance: PHENTERMINE
     Dosage: UNK

REACTIONS (5)
  - Hemiparesis [Unknown]
  - Dysarthria [Unknown]
  - Headache [Unknown]
  - Carotid artery dissection [Unknown]
  - Neck pain [Unknown]
